FAERS Safety Report 8952732 (Version 3)
Quarter: 2012Q4

REPORT INFORMATION
  Report Type: 
  Country: FR (occurrence: FR)
  Receive Date: 20121205
  Receipt Date: 20121227
  Transmission Date: 20130627
  Serious: Yes (Other)
  Sender: FDA-Public Use
  Company Number: FR-JNJFOC-20121114382

PATIENT
  Age: 56 Year
  Sex: Male

DRUGS (2)
  1. INFLIXIMAB, RECOMBINANT [Suspect]
     Indication: ENTEROCOLITIS HAEMORRHAGIC
     Route: 042
     Dates: start: 201204
  2. INFLIXIMAB, RECOMBINANT [Suspect]
     Indication: COLITIS ULCERATIVE
     Route: 042
     Dates: start: 201204

REACTIONS (1)
  - Bronchopulmonary aspergillosis [Recovering/Resolving]
